FAERS Safety Report 19690131 (Version 1)
Quarter: 2021Q3

REPORT INFORMATION
  Report Type: Spontaneous
  Country: None (occurrence: US)
  Receive Date: 20210812
  Receipt Date: 20210812
  Transmission Date: 20211014
  Serious: Yes (Death, Hospitalization, Other)
  Sender: FDA-Public Use
  Company Number: US-CHEPLA-2021001001

PATIENT
  Age: 62 Year
  Sex: Female

DRUGS (13)
  1. MOGAMULIZUMAB [Suspect]
     Active Substance: MOGAMULIZUMAB
     Indication: T-CELL LYMPHOMA
     Route: 065
     Dates: start: 20190612
  2. ETOPOSIDE PHOSPHATE [Suspect]
     Active Substance: ETOPOSIDE PHOSPHATE
     Indication: T-CELL LYMPHOMA
     Dosage: 3 CYCLES EPOCH = ETOPOSIDE PHOSPHATE, PREDNISONE, VINCRISTINE, CYCLOPHOSPHAMIDE, AND? DOXORUBICIN
     Route: 065
     Dates: start: 201901, end: 201902
  3. ETOPOSIDE. [Suspect]
     Active Substance: ETOPOSIDE
     Indication: T-CELL LYMPHOMA
     Dosage: 6 CYCLES CHOPE = CYCLOPHOSPHAMIDE, DOXORUBICIN, VINCRISTINE, PREDNISONE, AND ETOPOSIDE
     Route: 065
     Dates: start: 201805, end: 201810
  4. CYCLOPHOSPHAMIDE. [Suspect]
     Active Substance: CYCLOPHOSPHAMIDE
     Indication: T-CELL LYMPHOMA
     Dosage: 6 CYCLES CHOPE = CYCLOPHOSPHAMIDE, DOXORUBICIN, VINCRISTINE, PREDNISONE, AND ETOPOSIDE
     Route: 065
     Dates: start: 201805, end: 201810
  5. CYCLOPHOSPHAMIDE. [Suspect]
     Active Substance: CYCLOPHOSPHAMIDE
     Indication: T-CELL LYMPHOMA
     Dosage: 3 CYCLES EPOCH = ETOPOSIDE PHOSPHATE, PREDNISONE, VINCRISTINE, CYCLOPHOSPHAMIDE, AND? DOXORUBICIN
     Route: 065
     Dates: start: 201901, end: 201902
  6. MOGAMULIZUMAB [Suspect]
     Active Substance: MOGAMULIZUMAB
     Indication: T-CELL LYMPHOMA
     Route: 065
     Dates: start: 20190503
  7. DOXORUBICIN [Suspect]
     Active Substance: DOXORUBICIN
     Indication: T-CELL LYMPHOMA
     Dosage: 6 CYCLES CHOPE = CYCLOPHOSPHAMIDE, DOXORUBICIN, VINCRISTINE, PREDNISONE, AND ETOPOSIDE
     Route: 065
     Dates: start: 201805, end: 201810
  8. MOGAMULIZUMAB [Suspect]
     Active Substance: MOGAMULIZUMAB
     Indication: T-CELL LYMPHOMA
     Route: 065
     Dates: start: 20190523
  9. PREDNISONE. [Suspect]
     Active Substance: PREDNISONE
     Indication: T-CELL LYMPHOMA
     Dosage: 3 CYCLES EPOCH = ETOPOSIDE PHOSPHATE, PREDNISONE, VINCRISTINE, CYCLOPHOSPHAMIDE, AND? DOXORUBICIN
     Route: 065
     Dates: start: 201901, end: 201902
  10. DOXORUBICIN [Suspect]
     Active Substance: DOXORUBICIN
     Indication: T-CELL LYMPHOMA
     Dosage: 3 CYCLES EPOCH = ETOPOSIDE PHOSPHATE, PREDNISONE, VINCRISTINE, CYCLOPHOSPHAMIDE, AND? DOXORUBICIN
     Route: 065
     Dates: start: 201901, end: 201902
  11. VINCRISTINE [Suspect]
     Active Substance: VINCRISTINE
     Indication: T-CELL LYMPHOMA
     Dosage: 6 CYCLES CHOPE = CYCLOPHOSPHAMIDE, DOXORUBICIN, VINCRISTINE, PREDNISONE, AND ETOPOSIDE
     Route: 065
     Dates: start: 201805, end: 201810
  12. VINCRISTINE [Suspect]
     Active Substance: VINCRISTINE
     Indication: T-CELL LYMPHOMA
     Dosage: 3 CYCLES EPOCH = ETOPOSIDE PHOSPHATE, PREDNISONE, VINCRISTINE, CYCLOPHOSPHAMIDE, AND? DOXORUBICIN
     Route: 065
     Dates: start: 201901, end: 201902
  13. PREDNISONE. [Suspect]
     Active Substance: PREDNISONE
     Indication: T-CELL LYMPHOMA
     Dosage: 6 CYCLES CHOPE = CYCLOPHOSPHAMIDE, DOXORUBICIN, VINCRISTINE, PREDNISONE, AND ETOPOSIDE
     Route: 065
     Dates: start: 201805, end: 201810

REACTIONS (15)
  - Chest pain [Unknown]
  - Pyrexia [Recovered/Resolved]
  - Hypotension [Recovered/Resolved]
  - Hypotension [Unknown]
  - Cardiac failure [Unknown]
  - Tachycardia [Unknown]
  - Hypokinesia [Unknown]
  - Chills [Unknown]
  - Sinus tachycardia [Unknown]
  - Myocarditis [Unknown]
  - Shock [Unknown]
  - Cardiomyopathy [Unknown]
  - Condition aggravated [Unknown]
  - Tachypnoea [Recovered/Resolved]
  - Pulmonary embolism [Unknown]
